FAERS Safety Report 9297670 (Version 1)
Quarter: 2013Q2

REPORT INFORMATION
  Report Type: Spontaneous
  Country: FR (occurrence: FR)
  Receive Date: 20130520
  Receipt Date: 20130520
  Transmission Date: 20140414
  Serious: Yes (Hospitalization)
  Sender: FDA-Public Use
  Company Number: PHHY2013FR049142

PATIENT
  Age: 63 Year
  Sex: Female

DRUGS (4)
  1. COTAREG [Suspect]
     Indication: HYPERTENSION
     Dosage: 1 DF (VALS 80 MG, HCTZ 12.5 MG) QD
     Route: 048
     Dates: end: 20130327
  2. COLCHICINE OPOCALIUM [Interacting]
     Indication: GOUT
     Dosage: 1 MG, UNK
     Route: 048
     Dates: start: 20130325, end: 20130327
  3. NIFLURIL [Interacting]
     Indication: GOUT
     Dosage: 1 DF (250 MG) TID
     Route: 048
     Dates: start: 20130325, end: 20130327
  4. METFORMINE [Concomitant]
     Dosage: 3 G, DAILY
     Route: 048
     Dates: end: 20130327

REACTIONS (11)
  - Weight decreased [Recovering/Resolving]
  - Hyperkalaemia [Recovered/Resolved]
  - Renal failure acute [Recovering/Resolving]
  - Vomiting [Recovered/Resolved]
  - Diarrhoea [Recovered/Resolved]
  - Body temperature decreased [None]
  - Heart rate increased [None]
  - Metabolic acidosis [None]
  - Blood potassium decreased [None]
  - Tongue dry [None]
  - Drug interaction [None]
